FAERS Safety Report 7366823-4 (Version None)
Quarter: 2011Q1

REPORT INFORMATION
  Report Type: 
  Country: None (occurrence: None)
  Receive Date: 20110322
  Receipt Date: 20110317
  Transmission Date: 20110831
  Serious: Yes (Other)
  Sender: FDA-Public Use
  Company Number: JP-PFIZER INC-2011046283

PATIENT
  Age: 33 Year
  Sex: Male

DRUGS (4)
  1. ADALAT [Concomitant]
     Dosage: UNK
     Route: 048
  2. OLMETEC [Concomitant]
     Dosage: UNK
     Route: 048
  3. ZOLOFT [Suspect]
     Dosage: 25 MG DAILY
     Route: 048
     Dates: start: 20101111
  4. MYSLEE [Concomitant]
     Dosage: UNK
     Route: 048

REACTIONS (4)
  - HAEMORRHAGE SUBCUTANEOUS [None]
  - PLATELET COUNT DECREASED [None]
  - EPISTAXIS [None]
  - PURPURA [None]
